FAERS Safety Report 12500948 (Version 1)
Quarter: 2016Q2

REPORT INFORMATION
  Report Type: Spontaneous
  Country: FR (occurrence: FR)
  Receive Date: 20160627
  Receipt Date: 20160627
  Transmission Date: 20160815
  Serious: Yes (Other)
  Sender: FDA-Public Use
  Company Number: FR-TEVA-671239ISR

PATIENT
  Age: 16 Year
  Sex: Male
  Weight: 61.5 kg

DRUGS (12)
  1. PREDNISOLONE. [Concomitant]
     Active Substance: PREDNISOLONE
  2. VALACICLOVIR [Concomitant]
     Active Substance: VALACYCLOVIR HYDROCHLORIDE
  3. ESOMEPRAZOLE [Suspect]
     Active Substance: ESOMEPRAZOLE
  4. DASATINIB [Interacting]
     Active Substance: DASATINIB
  5. IMMUNOGLOBULINS [Concomitant]
     Active Substance: HUMAN IMMUNOGLOBULIN G
  6. ITRACONAZOLE. [Concomitant]
     Active Substance: ITRACONAZOLE
  7. CEFUROXIME. [Concomitant]
     Active Substance: CEFUROXIME
  8. PENTAMIDINE [Concomitant]
     Active Substance: PENTAMIDINE
  9. DASATINIB [Interacting]
     Active Substance: DASATINIB
  10. DASATINIB [Interacting]
     Active Substance: DASATINIB
  11. URSODEOXYCHOLIC ACID [Concomitant]
     Active Substance: URSODIOL
  12. DASATINIB [Interacting]
     Active Substance: DASATINIB

REACTIONS (1)
  - Drug interaction [Recovered/Resolved]
